FAERS Safety Report 8361916 (Version 2)
Quarter: 2013Q2

REPORT INFORMATION
  Report Type: Spontaneous
  Country: MX (occurrence: MX)
  Receive Date: 20120130
  Receipt Date: 20130412
  Transmission Date: 20140414
  Serious: Yes (Death, Other)
  Sender: FDA-Public Use
  Company Number: PHHY2012MX006471

PATIENT
  Age: 93 Year
  Sex: Female

DRUGS (1)
  1. EXFORGE [Suspect]
     Indication: HYPERTENSION
     Dosage: 1 DF(160 MG VALS/5 MG AMLO), DAILY
     Route: 048
     Dates: start: 20110727, end: 20110805

REACTIONS (3)
  - Death [Fatal]
  - Concomitant disease progression [Fatal]
  - Cerebrovascular accident [Unknown]
